FAERS Safety Report 8532362-8 (Version None)
Quarter: 2012Q3

REPORT INFORMATION
  Report Type: 
  Country: None (occurrence: None)
  Receive Date: 20120724
  Receipt Date: 20120716
  Transmission Date: 20120928
  Serious: No
  Sender: FDA-Public Use
  Company Number: US-BIOGENIDEC-2012BI025900

PATIENT
  Age: 51 Year
  Sex: Female

DRUGS (2)
  1. TYSABRI [Suspect]
     Indication: MULTIPLE SCLEROSIS
     Route: 042
     Dates: start: 20070125, end: 20090918
  2. TYSABRI [Suspect]
     Route: 042
     Dates: start: 20100322

REACTIONS (2)
  - GAIT DISTURBANCE [None]
  - BRONCHITIS [None]
